FAERS Safety Report 5399602-8 (Version None)
Quarter: 2007Q3

REPORT INFORMATION
  Report Type: 
  Country: None (occurrence: None)
  Receive Date: 20070727
  Receipt Date: 20070718
  Transmission Date: 20080115
  Serious: Yes (Hospitalization, Other)
  Sender: FDA-Public Use
  Company Number: US-AMGEN-STX225345

PATIENT
  Sex: Female
  Weight: 91.7 kg

DRUGS (12)
  1. ENBREL [Suspect]
     Indication: RHEUMATOID ARTHRITIS
     Route: 058
     Dates: start: 20060115
  2. ENBREL [Suspect]
     Indication: PSORIASIS
  3. METHOTREXATE [Concomitant]
  4. LOPID [Concomitant]
  5. ATENOLOL [Concomitant]
  6. LEXAPRO [Concomitant]
  7. LISINOPRIL [Concomitant]
  8. HYDROCHLOROTHIAZIDE [Concomitant]
  9. PROTONIX [Concomitant]
  10. DICLOFENAC SODIUM [Concomitant]
  11. LEVSIN [Concomitant]
  12. CENTRUM [Concomitant]

REACTIONS (6)
  - ACCIDENTAL NEEDLE STICK [None]
  - LOCALISED INFECTION [None]
  - PRURITUS [None]
  - RHEUMATOID ARTHRITIS [None]
  - SLEEP APNOEA SYNDROME [None]
  - STAPHYLOCOCCAL INFECTION [None]
